FAERS Safety Report 4704285-3 (Version None)
Quarter: 2005Q2

REPORT INFORMATION
  Report Type: 
  Country: None (occurrence: None)
  Receive Date: 20050628
  Receipt Date: 20050615
  Transmission Date: 20051028
  Serious: Yes (Other)
  Sender: FDA-Public Use
  Company Number: GB-2005-007398

PATIENT
  Age: 27 Year
  Sex: Female

DRUGS (1)
  1. MIRENA [Suspect]
     Indication: MENORRHAGIA
     Dosage: 20 UG/DAY, INTRA-UTERINE
     Route: 015
     Dates: start: 20030727

REACTIONS (3)
  - BLINDNESS TRANSIENT [None]
  - MULTIPLE SCLEROSIS [None]
  - OPTIC NEURITIS [None]
